FAERS Safety Report 10207417 (Version 1)
Quarter: 2014Q2

REPORT INFORMATION
  Report Type: Spontaneous
  Country: US (occurrence: US)
  Receive Date: 20140530
  Receipt Date: 20140530
  Transmission Date: 20141212
  Serious: No
  Sender: FDA-Public Use
  Company Number: US-GLAXOSMITHKLINE-A1042291A

PATIENT
  Age: 54 Year
  Sex: Female

DRUGS (1)
  1. VENTOLIN [Suspect]
     Indication: CHRONIC OBSTRUCTIVE PULMONARY DISEASE
     Dosage: 90MCG UNKNOWN
     Route: 055
     Dates: start: 20110628

REACTIONS (3)
  - Malaise [Not Recovered/Not Resolved]
  - Cough [Not Recovered/Not Resolved]
  - Chest pain [Not Recovered/Not Resolved]
